FAERS Safety Report 4727979-2 (Version None)
Quarter: 2005Q3

REPORT INFORMATION
  Report Type: 
  Country: None (occurrence: None)
  Receive Date: 20050725
  Receipt Date: 20050329
  Transmission Date: 20060218
  Serious: No
  Sender: FDA-Public Use
  Company Number: USA050394369

PATIENT
  Age: 19 Year
  Sex: Male

DRUGS (1)
  1. STRATTERA [Suspect]
     Indication: ATTENTION DEFICIT/HYPERACTIVITY DISORDER
     Dates: start: 20040801, end: 20041201

REACTIONS (6)
  - DECREASED APPETITE [None]
  - DISCOMFORT [None]
  - INSOMNIA [None]
  - MALAISE [None]
  - PALPITATIONS [None]
  - SEXUAL DYSFUNCTION [None]
